FAERS Safety Report 6832718-5 (Version None)
Quarter: 2010Q3

REPORT INFORMATION
  Report Type: 
  Country: None (occurrence: None)
  Receive Date: 20100712
  Receipt Date: 20100630
  Transmission Date: 20110219
  Serious: Yes (Hospitalization)
  Sender: FDA-Public Use
  Company Number: TH-WYE-H16040310

PATIENT
  Age: 90 Year
  Sex: Female

DRUGS (11)
  1. PANTOPRAZOLE [Suspect]
     Indication: DUODENAL ULCER HAEMORRHAGE
     Route: 042
     Dates: start: 20081124, end: 20081127
  2. PANTOPRAZOLE [Suspect]
     Route: 042
     Dates: start: 20090205, end: 20090208
  3. PREDNISOLONE [Concomitant]
     Indication: DUODENAL ULCER
     Dosage: 5 MG
     Dates: start: 20090217
  4. NEXIUM [Suspect]
     Dates: start: 20090104, end: 20090115
  5. RANITIDINE [Concomitant]
     Indication: DUODENAL ULCER
     Dates: start: 20090209, end: 20090217
  6. RANITIDINE [Concomitant]
     Dates: start: 20090218
  7. OMEPRAZOLE [Suspect]
     Indication: DUODENAL ULCER
     Dates: start: 20080101
  8. OMEPRAZOLE [Suspect]
     Dates: start: 20081030, end: 20081115
  9. OMEPRAZOLE [Suspect]
     Dates: start: 20081124, end: 20081124
  10. PREVACID [Suspect]
     Indication: DUODENAL ULCER
     Dates: start: 20081127, end: 20081201
  11. PREVACID [Suspect]
     Indication: DUODENAL ULCER HAEMORRHAGE
     Dates: start: 20090101, end: 20090104

REACTIONS (6)
  - DERMATITIS BULLOUS [None]
  - DRUG HYPERSENSITIVITY [None]
  - OEDEMA PERIPHERAL [None]
  - RASH ERYTHEMATOUS [None]
  - RASH PAPULAR [None]
  - RESPIRATION ABNORMAL [None]
